FAERS Safety Report 9265343 (Version 1)
Quarter: 2013Q2

REPORT INFORMATION
  Report Type: Spontaneous
  Country: BR (occurrence: BR)
  Receive Date: 20130501
  Receipt Date: 20130501
  Transmission Date: 20140414
  Serious: Yes (Other)
  Sender: FDA-Public Use
  Company Number: BR-PFIZER INC-2013130129

PATIENT
  Age: 67 Year
  Sex: Female
  Weight: 50 kg

DRUGS (4)
  1. LIPITOR [Suspect]
     Dosage: 10 MG, 1X/DAY
     Route: 048
  2. SPIRIVA [Suspect]
     Indication: ASTHMA
     Dosage: 2 ^GUSHES/FLUSHES^, PER DAY
     Route: 048
     Dates: start: 2003
  3. PLAVIX [Concomitant]
     Indication: ANTICOAGULANT THERAPY
     Dosage: 1 DF, DAILY
     Dates: start: 2007
  4. SYMBICORT [Concomitant]
     Indication: ASTHMA
     Dosage: 2 INHALATIONS, PER DAY
     Route: 055
     Dates: start: 2009

REACTIONS (4)
  - Ischaemia [Unknown]
  - Ischaemia [Unknown]
  - Ischaemia [Unknown]
  - Incorrect route of drug administration [Unknown]
